FAERS Safety Report 6827395-3 (Version None)
Quarter: 2010Q3

REPORT INFORMATION
  Report Type: 
  Country: None (occurrence: None)
  Receive Date: 20100709
  Receipt Date: 20070112
  Transmission Date: 20110219
  Serious: No
  Sender: FDA-Public Use
  Company Number: US-PFIZER INC-2007004785

PATIENT
  Sex: Female
  Weight: 68.04 kg

DRUGS (11)
  1. CHANTIX [Suspect]
     Indication: SMOKING CESSATION THERAPY
     Dates: start: 20061201
  2. ZOCOR [Concomitant]
     Indication: BLOOD CHOLESTEROL INCREASED
  3. ZETIA [Concomitant]
     Indication: BLOOD CHOLESTEROL INCREASED
  4. ATENOLOL [Concomitant]
     Indication: HYPERTENSION
  5. ALTACE [Concomitant]
     Indication: HYPERTENSION
  6. AMITRIPTYLINE HYDROCHLORIDE [Concomitant]
     Indication: POST-TRAUMATIC STRESS DISORDER
  7. CYMBALTA [Concomitant]
     Indication: POST-TRAUMATIC STRESS DISORDER
  8. DICYCLOMINE [Concomitant]
     Indication: COLECTOMY
  9. NEXIUM [Concomitant]
     Indication: GASTROOESOPHAGEAL REFLUX DISEASE
  10. LORAZEPAM [Concomitant]
  11. OTHER RESPIRATORY SYSTEM PRODUCTS [Concomitant]

REACTIONS (4)
  - FATIGUE [None]
  - NAUSEA [None]
  - RETCHING [None]
  - VOMITING [None]
